FAERS Safety Report 17429859 (Version 2)
Quarter: 2020Q2

REPORT INFORMATION
  Report Type: Spontaneous
  Country: US (occurrence: US)
  Receive Date: 20200218
  Receipt Date: 20200424
  Transmission Date: 20200713
  Serious: No
  Sender: FDA-Public Use
  Company Number: US-PFIZER INC-2020069141

PATIENT
  Age: 76 Year
  Sex: Female
  Weight: 58 kg

DRUGS (3)
  1. METHYLPREDNISOLONE. [Suspect]
     Active Substance: METHYLPREDNISOLONE
     Indication: PAIN
     Dosage: 8 MG
  2. XELJANZ XR [Suspect]
     Active Substance: TOFACITINIB CITRATE
     Indication: RHEUMATOID ARTHRITIS
     Dosage: 11 MG
     Route: 048
  3. TRIAMTERENE + HCTZ [Suspect]
     Active Substance: HYDROCHLOROTHIAZIDE\TRIAMTERENE
     Indication: HYPERTENSION
     Dosage: 2 DF, 1X/DAY (EVERY MORNING)
     Route: 048

REACTIONS (5)
  - Blood cholesterol increased [Unknown]
  - Head discomfort [Unknown]
  - Immune system disorder [Unknown]
  - Skin atrophy [Unknown]
  - Nightmare [Unknown]

NARRATIVE: CASE EVENT DATE: 20191202
